FAERS Safety Report 8326313-9 (Version None)
Quarter: 2012Q2

REPORT INFORMATION
  Report Type: 
  Country: None (occurrence: None)
  Receive Date: 20120501
  Receipt Date: 20090615
  Transmission Date: 20120825
  Serious: No
  Sender: FDA-Public Use
  Company Number: US-TEVA-2009006966

PATIENT
  Sex: Male
  Weight: 122.58 kg

DRUGS (4)
  1. NUVIGIL [Suspect]
     Dosage: 150 MILLIGRAM;
     Route: 048
  2. NUVIGIL [Suspect]
     Indication: CIRCADIAN RHYTHM SLEEP DISORDER
     Dosage: 75 MILLIGRAM;
     Route: 048
     Dates: start: 20090604
  3. NUVIGIL [Suspect]
     Dosage: 225 MILLIGRAM;
     Route: 048
  4. PRISTIQ [Concomitant]
     Indication: DEPRESSION
     Dates: start: 20090101

REACTIONS (1)
  - DRUG INEFFECTIVE [None]
